FAERS Safety Report 25323556 (Version 1)
Quarter: 2025Q2

REPORT INFORMATION
  Report Type: Spontaneous
  Country: JP (occurrence: JP)
  Receive Date: 20250516
  Receipt Date: 20250516
  Transmission Date: 20250716
  Serious: Yes (Other)
  Sender: ASTELLAS
  Company Number: JP-ASTELLAS-2025-AER-025638

PATIENT
  Sex: Male

DRUGS (4)
  1. XTANDI [Suspect]
     Active Substance: ENZALUTAMIDE
     Indication: Prostate cancer
     Route: 048
     Dates: start: 20250508
  2. LEUPLIN [Suspect]
     Active Substance: LEUPROLIDE ACETATE
     Indication: Hot flush
     Route: 065
  3. EDOXABAN TOSYLATE [Concomitant]
     Active Substance: EDOXABAN TOSYLATE
     Indication: Arrhythmia
     Route: 048
  4. BICALUTAMIDE [Concomitant]
     Active Substance: BICALUTAMIDE
     Indication: Product used for unknown indication
     Route: 048

REACTIONS (7)
  - Urinary retention [Unknown]
  - Urinary tract discomfort [Unknown]
  - Urinary incontinence [Unknown]
  - Urine output decreased [Unknown]
  - Urinary incontinence [Unknown]
  - Pollakiuria [Unknown]
  - Hot flush [Unknown]
